FAERS Safety Report 8606672-X (Version None)
Quarter: 2012Q3

REPORT INFORMATION
  Report Type: 
  Country: None (occurrence: None)
  Receive Date: 20120820
  Receipt Date: 20120806
  Transmission Date: 20120928
  Serious: Yes (Other)
  Sender: FDA-Public Use
  Company Number: US-ELI_LILLY_AND_COMPANY-US201208000797

PATIENT
  Sex: Female

DRUGS (3)
  1. BYDUREON [Concomitant]
     Dosage: UNK, UNKNOWN
  2. HUMALOG [Suspect]
     Indication: DIABETES MELLITUS
     Dosage: UNK, PRN
  3. HUMALOG [Suspect]
     Dosage: UNK, PRN

REACTIONS (2)
  - RETINAL HAEMORRHAGE [None]
  - BLOOD GLUCOSE ABNORMAL [None]
